FAERS Safety Report 11371287 (Version 3)
Quarter: 2015Q3

REPORT INFORMATION
  Report Type: Spontaneous
  Country: DE (occurrence: DE)
  Receive Date: 20150812
  Receipt Date: 20150910
  Transmission Date: 20151125
  Serious: Yes (Other)
  Sender: FDA-Public Use
  Company Number: PHHY2015DE089290

PATIENT
  Age: 69 Year
  Sex: Male
  Weight: 70 kg

DRUGS (2)
  1. BELOC MITE [Concomitant]
     Indication: EXTRASYSTOLES
     Route: 065
  2. SANDOSTATIN LAR DEPOT [Suspect]
     Active Substance: OCTREOTIDE ACETATE
     Indication: NEUROENDOCRINE TUMOUR
     Dosage: 20 MG, QMO
     Route: 065
     Dates: start: 20150109, end: 2015

REACTIONS (25)
  - Extrasystoles [Recovered/Resolved]
  - Tachycardia [Recovered/Resolved]
  - Faecalith [Unknown]
  - Dyspnoea [Unknown]
  - Performance status decreased [Unknown]
  - Constipation [Unknown]
  - Abdominal distension [Unknown]
  - Haemorrhagic diathesis [Unknown]
  - Abnormal faeces [Unknown]
  - Fatigue [Unknown]
  - Asthenia [Unknown]
  - Bone marrow toxicity [Unknown]
  - Immune thrombocytopenic purpura [Not Recovered/Not Resolved]
  - Haemoptysis [Recovered/Resolved]
  - Metastases to liver [Unknown]
  - Vomiting [Unknown]
  - Headache [Unknown]
  - Decreased appetite [Unknown]
  - Epistaxis [Unknown]
  - Hepatomegaly [Recovered/Resolved]
  - Weight decreased [Unknown]
  - Abdominal pain [Unknown]
  - Anti-platelet antibody positive [Unknown]
  - Malignant neoplasm progression [Unknown]
  - Cardiac disorder [Recovered/Resolved]

NARRATIVE: CASE EVENT DATE: 2015
